FAERS Safety Report 16284102 (Version 2)
Quarter: 2019Q2

REPORT INFORMATION
  Report Type: Spontaneous
  Country: ES (occurrence: ES)
  Receive Date: 20190507
  Receipt Date: 20190606
  Transmission Date: 20190711
  Serious: Yes (Other)
  Sender: FDA-Public Use
  Company Number: ES-BIOGEN-2019BI00734276

PATIENT
  Age: 39 Year
  Sex: Female

DRUGS (1)
  1. TECFIDERA [Suspect]
     Active Substance: DIMETHYL FUMARATE
     Indication: RELAPSING-REMITTING MULTIPLE SCLEROSIS
     Route: 048
     Dates: start: 20170721, end: 201902

REACTIONS (6)
  - Flushing [Unknown]
  - Lymphocyte count decreased [Unknown]
  - Polyarthritis [Unknown]
  - Butterfly rash [Unknown]
  - Ileus paralytic [Unknown]
  - Whipple^s disease [Not Recovered/Not Resolved]

NARRATIVE: CASE EVENT DATE: 201808
